FAERS Safety Report 15378376 (Version 3)
Quarter: 2019Q4

REPORT INFORMATION
  Report Type: Spontaneous
  Country: JP (occurrence: JP)
  Receive Date: 20180913
  Receipt Date: 20191216
  Transmission Date: 20200122
  Serious: Yes (Hospitalization, Other)
  Sender: FDA-Public Use
  Company Number: JP-PFIZER INC-2018368774

PATIENT
  Age: 82 Year
  Sex: Male

DRUGS (1)
  1. ANCARON [Suspect]
     Active Substance: AMIODARONE HYDROCHLORIDE
     Indication: ATRIAL FIBRILLATION
     Dosage: 100 MG, DAILY
     Route: 048

REACTIONS (5)
  - Lung disorder [Recovering/Resolving]
  - Decreased appetite [Unknown]
  - Pneumonia [Recovering/Resolving]
  - Cardiac failure chronic [Recovering/Resolving]
  - Dyspnoea exertional [Unknown]
